FAERS Safety Report 5599375-X (Version None)
Quarter: 2008Q1

REPORT INFORMATION
  Report Type: 
  Country: None (occurrence: None)
  Receive Date: 20080122
  Receipt Date: 20080110
  Transmission Date: 20080703
  Serious: Yes (Other)
  Sender: FDA-Public Use
  Company Number: CL-PFIZER INC-2008003870

PATIENT
  Sex: Female

DRUGS (1)
  1. LYRICA [Suspect]
     Indication: OSTEOPOROSIS
     Route: 048

REACTIONS (4)
  - ABDOMINAL PAIN UPPER [None]
  - GLAUCOMA [None]
  - PAIN IN EXTREMITY [None]
  - VISION BLURRED [None]
